FAERS Safety Report 13405193 (Version 1)
Quarter: 2017Q2

REPORT INFORMATION
  Report Type: Report from Study
  Country: US (occurrence: US)
  Receive Date: 20170405
  Receipt Date: 20170405
  Transmission Date: 20170830
  Serious: Yes (Hospitalization, Other)
  Sender: FDA-Public Use
  Company Number: US-BIOGEN-2010BI028832

PATIENT
  Age: 47 Year
  Sex: Female
  Weight: 66.28 kg

DRUGS (8)
  1. BACLOFEN. [Concomitant]
     Active Substance: BACLOFEN
     Indication: MUSCLE SPASTICITY
     Route: 065
     Dates: start: 2003
  2. TYSABRI [Suspect]
     Active Substance: NATALIZUMAB
     Indication: MULTIPLE SCLEROSIS
     Dosage: INFUSED OVER 1 HOUR
     Route: 042
     Dates: start: 20061120, end: 20140905
  3. TYSABRI [Suspect]
     Active Substance: NATALIZUMAB
     Dosage: INFUSED OVER 1 HOUR
     Route: 042
     Dates: start: 20160226, end: 20160325
  4. SYNTHROID [Concomitant]
     Active Substance: LEVOTHYROXINE SODIUM
     Indication: HYPOTHYROIDISM
     Route: 065
     Dates: start: 1999
  5. PREVACID [Concomitant]
     Active Substance: LANSOPRAZOLE
     Indication: GASTROOESOPHAGEAL REFLUX DISEASE
     Route: 065
     Dates: start: 1997
  6. PREVACID [Concomitant]
     Active Substance: LANSOPRAZOLE
     Indication: ULCER
  7. LYRICA [Concomitant]
     Active Substance: PREGABALIN
     Indication: NEUROPATHY PERIPHERAL
     Route: 065
     Dates: start: 2005
  8. MORPHINE [Concomitant]
     Active Substance: MORPHINE
     Indication: MUSCLE SPASTICITY
     Route: 065
     Dates: start: 2003

REACTIONS (11)
  - Fall [Recovered/Resolved]
  - Oesophageal spasm [Not Recovered/Not Resolved]
  - Blood urine present [Recovered/Resolved]
  - Oedema [Not Recovered/Not Resolved]
  - Depression [Not Recovered/Not Resolved]
  - Nausea [Not Recovered/Not Resolved]
  - Hip fracture [Recovered/Resolved]
  - Osteonecrosis [Unknown]
  - Cellulitis [Recovered/Resolved]
  - Facial bones fracture [Not Recovered/Not Resolved]
  - Osteoporosis [Not Recovered/Not Resolved]

NARRATIVE: CASE EVENT DATE: 2007
